FAERS Safety Report 18261430 (Version 5)
Quarter: 2021Q1

REPORT INFORMATION
  Report Type: Spontaneous
  Country: JP (occurrence: JP)
  Receive Date: 20200914
  Receipt Date: 20210217
  Transmission Date: 20210419
  Serious: Yes (Hospitalization, Other)
  Sender: FDA-Public Use
  Company Number: JP-AMGEN-JPNSP2020146181

PATIENT
  Age: 65 Year
  Sex: Male

DRUGS (13)
  1. REPATHA [Suspect]
     Active Substance: EVOLOCUMAB
     Indication: HYPERCHOLESTEROLAEMIA
     Dosage: 140 MILLIGRAM, Q2WK
     Route: 058
     Dates: start: 20200903, end: 20200907
  2. PLAVIX [Suspect]
     Active Substance: CLOPIDOGREL BISULFATE
     Indication: ANTIPLATELET THERAPY
     Dosage: 75 MILLIGRAM, QD
     Route: 065
     Dates: start: 20200826
  3. EPADEL?S [Concomitant]
     Active Substance: ICOSAPENT ETHYL
     Dosage: 900 UNK
     Dates: start: 20200826
  4. EZETIMIBE. [Concomitant]
     Active Substance: EZETIMIBE
     Dosage: 10 UNK
  5. PLETAAL [Suspect]
     Active Substance: CILOSTAZOL
     Indication: ANTIPLATELET THERAPY
     Dosage: 100 MILLIGRAM, BID
     Route: 065
     Dates: start: 20200826
  6. BEZAFIBRATE [Concomitant]
     Active Substance: BEZAFIBRATE
     Dosage: 200 UNK
  7. LANSOPRAZOLE. [Concomitant]
     Active Substance: LANSOPRAZOLE
     Dosage: 15 UNK
  8. SALINE [SODIUM CHLORIDE] [Concomitant]
     Active Substance: SODIUM CHLORIDE
     Dosage: 20 MILLILITER 2 AMPOULES
  9. TRAZENTA [Concomitant]
     Active Substance: LINAGLIPTIN
     Dosage: 5 UNK
  10. METFORMIN HYDROCHLORIDE. [Concomitant]
     Active Substance: METFORMIN HYDROCHLORIDE
     Dosage: 500 UNK
  11. BEPOTASTINE BESILATE [Concomitant]
     Active Substance: BEPOTASTINE BESYLATE
     Dosage: 10 UNK
  12. PERFUSAMINE [Concomitant]
     Active Substance: IOFETAMINE HYDROCHLORIDE I-123
     Dosage: 167 MEGABECQUEREL
  13. TELMISARTAN. [Concomitant]
     Active Substance: TELMISARTAN
     Dosage: 40 UNK

REACTIONS (1)
  - Erythema multiforme [Recovered/Resolved]

NARRATIVE: CASE EVENT DATE: 20200903
